FAERS Safety Report 13570864 (Version 1)
Quarter: 2017Q2

REPORT INFORMATION
  Report Type: Spontaneous
  Country: US (occurrence: US)
  Receive Date: 20170523
  Receipt Date: 20170523
  Transmission Date: 20170830
  Serious: No
  Sender: FDA-Public Use
  Company Number: US-TEVA-745155ACC

PATIENT
  Sex: Female

DRUGS (1)
  1. AMLODIPINE W/BENAZEPRIL [Suspect]
     Active Substance: AMLODIPINE BESYLATE\BENAZEPRIL HYDROCHLORIDE
     Dosage: EVENING. AMLODIPINE /BENAZEPRIL : 2.5/10 MG
     Dates: start: 201702, end: 20170226

REACTIONS (3)
  - Asthenia [Not Recovered/Not Resolved]
  - Hypotension [Recovered/Resolved]
  - Hypertension [Not Recovered/Not Resolved]

NARRATIVE: CASE EVENT DATE: 201702
